FAERS Safety Report 6011163-9 (Version None)
Quarter: 2008Q4

REPORT INFORMATION
  Report Type: 
  Country: None (occurrence: None)
  Receive Date: 20081218
  Receipt Date: 20081211
  Transmission Date: 20090506
  Serious: Yes (Other)
  Sender: FDA-Public Use
  Company Number: US-MERCK-0703USA02172

PATIENT
  Age: 58 Year
  Sex: Female
  Weight: 61 kg

DRUGS (9)
  1. FOSAMAX [Suspect]
     Indication: OSTEOPENIA
     Route: 048
     Dates: end: 20030101
  2. FOSAMAX [Suspect]
     Route: 048
     Dates: start: 20000810, end: 20010101
  3. FOSAMAX [Suspect]
     Indication: OSTEOPOROSIS
     Route: 048
     Dates: end: 20030101
  4. FOSAMAX [Suspect]
     Route: 048
     Dates: start: 20000810, end: 20010101
  5. CLONAZEPAM [Concomitant]
     Indication: SLEEP DISORDER
     Route: 065
     Dates: start: 19960101, end: 20030101
  6. NEXIUM [Concomitant]
     Route: 065
     Dates: start: 20020801
  7. TRAZODONE HYDROCHLORIDE [Concomitant]
     Route: 065
  8. CALCIUM (UNSPECIFIED) AND VITAMIN D (UNSPECIFIED) [Concomitant]
     Route: 065
  9. TAMOXIFEN CITRATE [Concomitant]
     Route: 065
     Dates: start: 19960901, end: 20010901

REACTIONS (23)
  - ADENOMA BENIGN [None]
  - ANXIETY [None]
  - ARTHRALGIA [None]
  - BLOOD ALKALINE PHOSPHATASE INCREASED [None]
  - BREAST LUMP REMOVAL [None]
  - CHEST PAIN [None]
  - GAMMA-GLUTAMYLTRANSFERASE INCREASED [None]
  - INSOMNIA [None]
  - JAW CYST [None]
  - LARYNGITIS [None]
  - LIP SWELLING [None]
  - ORAL DISCOMFORT [None]
  - OSTEOMYELITIS [None]
  - OSTEONECROSIS [None]
  - PHARYNGITIS [None]
  - PRURITUS [None]
  - RASH [None]
  - SINUSITIS [None]
  - SKIN CANCER [None]
  - STRESS [None]
  - VIRAL INFECTION [None]
  - VOCAL CORD NEOPLASM [None]
  - VOMITING [None]
